FAERS Safety Report 9201157 (Version 1)
Quarter: 2013Q2

REPORT INFORMATION
  Report Type: Spontaneous
  Country: US (occurrence: US)
  Receive Date: 20130401
  Receipt Date: 20130401
  Transmission Date: 20140414
  Serious: No
  Sender: FDA-Public Use
  Company Number: US-PFIZER INC-2013100454

PATIENT
  Age: 77 Year
  Sex: Female
  Weight: 36.74 kg

DRUGS (2)
  1. VFEND [Suspect]
     Indication: PULMONARY MYCOSIS
     Dosage: 200 MG, 2X/DAY
     Dates: start: 201211
  2. GABAPENTIN [Concomitant]
     Dosage: 100 MG, 4X/DAY

REACTIONS (1)
  - Alopecia [Not Recovered/Not Resolved]
